FAERS Safety Report 14573092 (Version 1)
Quarter: 2018Q1

REPORT INFORMATION
  Report Type: Spontaneous
  Country: US (occurrence: US)
  Receive Date: 20180223
  Receipt Date: 20180223
  Transmission Date: 20180509
  Serious: Yes (Disabling)
  Sender: FDA-Public Use
  Company Number: None

PATIENT
  Age: 29 Year
  Sex: Female
  Weight: 90 kg

DRUGS (5)
  1. DEXAMETHASONE. [Suspect]
     Active Substance: DEXAMETHASONE
     Indication: NONINFECTIVE ENCEPHALITIS
     Dosage: ?          QUANTITY:1 TABLET(S);OTHER FREQUENCY:1300 MG/6WEEKS+;?
     Route: 048
     Dates: start: 20161019, end: 20161223
  2. MULTI-VITAMIN FOR WOMEN [Concomitant]
  3. MSM [Concomitant]
     Active Substance: DIMETHYL SULFONE
  4. VITAMN D [Concomitant]
  5. ALLEGRA [Concomitant]
     Active Substance: FEXOFENADINE HYDROCHLORIDE

REACTIONS (6)
  - Groin pain [None]
  - Arthralgia [None]
  - Inflammatory bowel disease [None]
  - Ehlers-Danlos syndrome [None]
  - Treatment failure [None]
  - Osteonecrosis [None]

NARRATIVE: CASE EVENT DATE: 20161019
